FAERS Safety Report 23619499 (Version 1)
Quarter: 2024Q1

REPORT INFORMATION
  Report Type: Spontaneous
  Country: JP (occurrence: JP)
  Receive Date: 20240312
  Receipt Date: 20240312
  Transmission Date: 20240410
  Serious: Yes (Other)
  Sender: FDA-Public Use
  Company Number: JP-SA-2024SA072530

PATIENT
  Age: 48 Year
  Sex: Female

DRUGS (1)
  1. LANTUS SOLOSTAR [Suspect]
     Active Substance: INSULIN GLARGINE
     Indication: Suicide attempt
     Dosage: 450 UNITS
     Route: 058

REACTIONS (5)
  - Adrenal insufficiency [Unknown]
  - Hypoglycaemic coma [Unknown]
  - Altered state of consciousness [Recovering/Resolving]
  - Hypoglycaemia [Unknown]
  - Intentional overdose [Unknown]
